FAERS Safety Report 24099420 (Version 1)
Quarter: 2024Q3

REPORT INFORMATION
  Report Type: Spontaneous
  Country: US (occurrence: US)
  Receive Date: 20240716
  Receipt Date: 20240716
  Transmission Date: 20241016
  Serious: No
  Sender: NOVO NORDISK
  Company Number: US-NOVOPROD-1174823

PATIENT

DRUGS (1)
  1. OZEMPIC [Suspect]
     Active Substance: SEMAGLUTIDE
     Indication: Weight control
     Dosage: 1 MG
     Route: 058

REACTIONS (4)
  - Migraine [Unknown]
  - Hot flush [Unknown]
  - Inappropriate schedule of product administration [Unknown]
  - Off label use [Unknown]
